FAERS Safety Report 8010106-6 (Version None)
Quarter: 2011Q4

REPORT INFORMATION
  Report Type: 
  Country: None (occurrence: None)
  Receive Date: 20111228
  Receipt Date: 20111216
  Transmission Date: 20120403
  Serious: Yes (Other)
  Sender: FDA-Public Use
  Company Number: FR-BRISTOL-MYERS SQUIBB COMPANY-16317349

PATIENT
  Age: 51 Year
  Sex: Female

DRUGS (1)
  1. LYSODREN [Suspect]
     Indication: ADRENOCORTICAL CARCINOMA
     Dosage: DECREASED ON 29JUL2011, 2 TABS 3 TIMES  A DAY
     Route: 048
     Dates: start: 20110712, end: 20110811

REACTIONS (2)
  - HEPATITIS [None]
  - TRANSAMINASES INCREASED [None]
